FAERS Safety Report 9320827 (Version 1)
Quarter: 2013Q2

REPORT INFORMATION
  Report Type: Spontaneous
  Country: US (occurrence: None)
  Receive Date: 20130529
  Receipt Date: 20130529
  Transmission Date: 20140414
  Serious: No
  Sender: FDA-Public Use
  Company Number: None

PATIENT
  Age: 90 None
  Sex: Male
  Weight: 99.3 kg

DRUGS (1)
  1. CEFAZOLIN [Suspect]
     Route: 042
     Dates: start: 20130102, end: 20130122

REACTIONS (2)
  - Angioedema [None]
  - Urticaria [None]
